FAERS Safety Report 12486768 (Version 1)
Quarter: 2016Q2

REPORT INFORMATION
  Report Type: Spontaneous
  Country: US (occurrence: US)
  Receive Date: 20160621
  Receipt Date: 20160621
  Transmission Date: 20160815
  Serious: Yes (Other)
  Sender: FDA-Public Use
  Company Number: US-ACTELION-A-US2016-136980

PATIENT
  Age: 3 Year
  Sex: Male

DRUGS (3)
  1. TRACLEER [Suspect]
     Active Substance: BOSENTAN
     Indication: PULMONARY ARTERIAL HYPERTENSION
     Dosage: 31.25 MG, QD
     Route: 048
     Dates: start: 20150201, end: 20150305
  2. TRACLEER [Suspect]
     Active Substance: BOSENTAN
     Dosage: 31.25 MG, BID
     Route: 048
     Dates: start: 20150306, end: 20160425
  3. TRACLEER [Suspect]
     Active Substance: BOSENTAN
     Dosage: 31.25 MG QD
     Route: 048
     Dates: start: 20160426, end: 20160608

REACTIONS (4)
  - Aspartate aminotransferase increased [Recovering/Resolving]
  - Liver function test increased [Recovering/Resolving]
  - No therapeutic response [Unknown]
  - Alanine aminotransferase increased [Recovering/Resolving]

NARRATIVE: CASE EVENT DATE: 20160426
